FAERS Safety Report 6521645-9 (Version None)
Quarter: 2009Q4

REPORT INFORMATION
  Report Type: 
  Country: None (occurrence: None)
  Receive Date: 20091230
  Receipt Date: 20091218
  Transmission Date: 20100525
  Serious: Yes (Other)
  Sender: FDA-Public Use
  Company Number: PHHY2009GB57808

PATIENT
  Sex: Female

DRUGS (2)
  1. ACLASTA [Suspect]
     Indication: OSTEOPOROSIS
     Dosage: 5 MG
     Dates: start: 20090901
  2. ALENDRONATE SODIUM [Concomitant]
     Dosage: 700 MG, QW
     Dates: start: 20091212

REACTIONS (1)
  - TEMPORAL ARTERITIS [None]
